FAERS Safety Report 23054054 (Version 3)
Quarter: 2023Q4

REPORT INFORMATION
  Report Type: Spontaneous
  Country: US (occurrence: US)
  Receive Date: 20231011
  Receipt Date: 20231222
  Transmission Date: 20240110
  Serious: No
  Sender: FDA-Public Use
  Company Number: US-GLAXOSMITHKLINE-US2023AMR137209

PATIENT
  Sex: Female

DRUGS (1)
  1. ZEJULA [Suspect]
     Active Substance: NIRAPARIB
     Indication: Ovarian cancer
     Dosage: 200 MG, QD

REACTIONS (7)
  - Pain [Unknown]
  - Fatigue [Unknown]
  - Periorbital swelling [Unknown]
  - Lip discolouration [Unknown]
  - Breast pain [Unknown]
  - Adverse drug reaction [Unknown]
  - Back pain [Unknown]
